FAERS Safety Report 7775444-0 (Version None)
Quarter: 2011Q3

REPORT INFORMATION
  Report Type: 
  Country: None (occurrence: None)
  Receive Date: 20110923
  Receipt Date: 20110920
  Transmission Date: 20111222
  Serious: Yes (Hospitalization, Disabling)
  Sender: FDA-Public Use
  Company Number: PHHY2011CA70728

PATIENT
  Sex: Female

DRUGS (15)
  1. AZITHROMYCIN [Concomitant]
  2. POTASSIUM [Concomitant]
  3. FLUDROCORTISONE ACETATE [Concomitant]
  4. TYLENOL-500 [Concomitant]
  5. LASIX [Concomitant]
  6. CALCIUM CARBONATE [Concomitant]
  7. BIMATOPROST [Concomitant]
  8. FERROUS FUMARATE [Concomitant]
  9. ZOLEDRONOC ACID [Suspect]
     Indication: OSTEOPOROSIS
     Dosage: UNK UKN, UNK
     Route: 042
     Dates: start: 20100826
  10. CARBIDOPA [Concomitant]
  11. LEVOFLOXACIN [Concomitant]
  12. LEVODOPA [Concomitant]
  13. LOVENOX [Concomitant]
  14. AZOPT [Concomitant]
  15. VITAMIN D [Concomitant]

REACTIONS (3)
  - HIP FRACTURE [None]
  - CYSTITIS [None]
  - FALL [None]
